FAERS Safety Report 20528367 (Version 3)
Quarter: 2022Q2

REPORT INFORMATION
  Report Type: Spontaneous
  Country: TN (occurrence: TN)
  Receive Date: 20220228
  Receipt Date: 20220412
  Transmission Date: 20220720
  Serious: Yes (Hospitalization, Other)
  Sender: FDA-Public Use
  Company Number: TN-BIOGEN-2022BI01100569

PATIENT
  Age: 31 Year
  Sex: Female
  Weight: 65 kg

DRUGS (1)
  1. TYSABRI [Suspect]
     Active Substance: NATALIZUMAB
     Indication: Relapsing-remitting multiple sclerosis
     Route: 042
     Dates: start: 202002, end: 202202

REACTIONS (2)
  - Encephalitis viral [Recovered/Resolved with Sequelae]
  - Seizure [Recovered/Resolved]

NARRATIVE: CASE EVENT DATE: 20210501
